FAERS Safety Report 7910170-6 (Version None)
Quarter: 2011Q4

REPORT INFORMATION
  Report Type: 
  Country: None (occurrence: None)
  Receive Date: 20111111
  Receipt Date: 20111101
  Transmission Date: 20120403
  Serious: Yes (Hospitalization)
  Sender: FDA-Public Use
  Company Number: AR-ROCHE-1011164

PATIENT
  Sex: Female

DRUGS (1)
  1. LUCENTIS [Suspect]
     Indication: RETINAL FIBROSIS
     Route: 050
     Dates: start: 20100301

REACTIONS (2)
  - DEVICE RELATED INFECTION [None]
  - MALAISE [None]
